FAERS Safety Report 9649543 (Version 2)
Quarter: 2013Q4

REPORT INFORMATION
  Report Type: Spontaneous
  Country: US (occurrence: US)
  Receive Date: 20131028
  Receipt Date: 20131115
  Transmission Date: 20140711
  Serious: Yes (Other)
  Sender: FDA-Public Use
  Company Number: US-PFIZER INC-2013307515

PATIENT
  Age: 81 Year
  Sex: Female
  Weight: 58.05 kg

DRUGS (1)
  1. ADVIL [Suspect]
     Indication: OSTEOARTHRITIS
     Dosage: 200 MG, ONCE
     Route: 048
     Dates: start: 20131022, end: 20131022

REACTIONS (3)
  - Rectal haemorrhage [Unknown]
  - Dyspnoea [Unknown]
  - Abdominal pain [Unknown]
